FAERS Safety Report 6707218-3 (Version None)
Quarter: 2010Q2

REPORT INFORMATION
  Report Type: 
  Country: None (occurrence: None)
  Receive Date: 20100503
  Receipt Date: 20081022
  Transmission Date: 20101027
  Serious: No
  Sender: FDA-Public Use
  Company Number: US-ASTRAZENECA-2008UW23570

PATIENT
  Age: 23025 Day
  Sex: Female
  Weight: 52.2 kg

DRUGS (7)
  1. NEXIUM [Suspect]
     Indication: GASTROOESOPHAGEAL REFLUX DISEASE
     Dosage: 40 MG
     Route: 048
  2. ASPIRIN [Suspect]
     Route: 048
     Dates: start: 20081015
  3. ALLEGRA [Concomitant]
  4. PREMARIN [Concomitant]
  5. INFEDICAL [Concomitant]
  6. ACIDOPHILLUS [Concomitant]
  7. VITAMINS [Concomitant]

REACTIONS (1)
  - GASTROOESOPHAGEAL REFLUX DISEASE [None]
